FAERS Safety Report 18804580 (Version 2)
Quarter: 2022Q1

REPORT INFORMATION
  Report Type: Spontaneous
  Country: US (occurrence: US)
  Receive Date: 20210129
  Receipt Date: 20220224
  Transmission Date: 20220423
  Serious: No
  Sender: FDA-Public Use
  Company Number: US-UCBSA-2020015038

PATIENT
  Age: 60 Year
  Sex: Male

DRUGS (8)
  1. LEVETIRACETAM [Suspect]
     Active Substance: LEVETIRACETAM
     Indication: Myoclonus
     Dosage: 500 MILLIGRAM, 2X/DAY (BID)
     Route: 048
  2. LEVETIRACETAM [Suspect]
     Active Substance: LEVETIRACETAM
     Indication: Off label use
  3. AMIODARONE [Concomitant]
     Active Substance: AMIODARONE
     Indication: Product used for unknown indication
     Dosage: UNKNOWN DOSE
  4. AMIODARONE [Concomitant]
     Active Substance: AMIODARONE
     Dosage: 400 MILLIGRAM, 2X/DAY (BID)
  5. AMIODARONE [Concomitant]
     Active Substance: AMIODARONE
     Dosage: 400 MILLIGRAM, 3X/DAY (TID)
  6. LIDOCAINE [Concomitant]
     Active Substance: LIDOCAINE
     Indication: Product used for unknown indication
     Dosage: 100 MILLIGRAM
     Route: 040
  7. LIDOCAINE [Concomitant]
     Active Substance: LIDOCAINE
     Dosage: DRIP AT 2 MG/MIN
     Route: 040
  8. LIDOCAINE [Concomitant]
     Active Substance: LIDOCAINE
     Dosage: DECREASED TO 1 MG/MIN
     Route: 040

REACTIONS (1)
  - No adverse event [Unknown]
